FAERS Safety Report 5027073-X (Version None)
Quarter: 2006Q2

REPORT INFORMATION
  Report Type: 
  Country: None (occurrence: None)
  Receive Date: 20060609
  Receipt Date: 20060602
  Transmission Date: 20061013
  Serious: Yes (Hospitalization)
  Sender: FDA-Public Use
  Company Number: 2006071068

PATIENT
  Age: 90 Year
  Sex: Female
  Weight: 40 kg

DRUGS (8)
  1. ZOLOFT [Suspect]
     Indication: DYSTHYMIC DISORDER
     Dosage: 50 MG (50 MG, 1 IN 1 D), ORAL
     Route: 048
     Dates: start: 20060224, end: 20060225
  2. SIBELIUM (FLUNARIZINE DIHYDROCHLORIDE) [Suspect]
     Indication: DYSTHYMIC DISORDER
     Dosage: 10 MG (10 MG, 1 IN 1 D), ORAL
     Route: 048
     Dates: start: 20060224, end: 20060225
  3. OLMIFON (ADRAFINIL) [Concomitant]
  4. ACTONEL [Concomitant]
  5. TEGRETOL [Concomitant]
  6. LEVOCETIRIZINE  DIHYDROCHLORIDE (LEVOCETIRIZINE DIHYDROCHLORIDE) [Concomitant]
  7. IMOVANE (ZOPICLONE) [Concomitant]
  8. RENUTRYL 500 (CASEIN, ELECTROLYTES NOS, FATS NOS, LACTOPROTEIN, STARCH [Concomitant]

REACTIONS (2)
  - FALL [None]
  - VERTIGO [None]
